FAERS Safety Report 12296007 (Version 1)
Quarter: 2016Q2

REPORT INFORMATION
  Report Type: Spontaneous
  Country: US (occurrence: US)
  Receive Date: 20160422
  Receipt Date: 20160422
  Transmission Date: 20160815
  Serious: No
  Sender: FDA-Public Use
  Company Number: US-PURDUE-USA-2016-0128373

PATIENT
  Sex: Male

DRUGS (1)
  1. OXYCONTIN [Suspect]
     Active Substance: OXYCODONE HYDROCHLORIDE
     Indication: PRODUCT USED FOR UNKNOWN INDICATION
     Dosage: 4X20 MG, BID
     Route: 048

REACTIONS (3)
  - Anaemia [Not Recovered/Not Resolved]
  - Drug tolerance [Unknown]
  - Blood viscosity increased [Not Recovered/Not Resolved]

NARRATIVE: CASE EVENT DATE: 2014
